FAERS Safety Report 13876633 (Version 1)
Quarter: 2017Q3

REPORT INFORMATION
  Report Type: Report from Study
  Country: GB (occurrence: GB)
  Receive Date: 20170817
  Receipt Date: 20170817
  Transmission Date: 20171127
  Serious: Yes (Hospitalization)
  Sender: FDA-Public Use
  Company Number: GB-ROCHE-1977852

PATIENT
  Sex: Male
  Weight: 87 kg

DRUGS (1)
  1. TOCILIZUMAB. [Suspect]
     Active Substance: TOCILIZUMAB
     Indication: RHEUMATOID ARTHRITIS
     Route: 042
     Dates: start: 20140619, end: 20170413

REACTIONS (3)
  - Vision blurred [Recovering/Resolving]
  - Cerebral infarction [Unknown]
  - Headache [Unknown]

NARRATIVE: CASE EVENT DATE: 20170503
